FAERS Safety Report 8042972-2 (Version None)
Quarter: 2012Q1

REPORT INFORMATION
  Report Type: 
  Country: None (occurrence: None)
  Receive Date: 20120112
  Receipt Date: 20120104
  Transmission Date: 20120608
  Serious: Yes (Hospitalization, Other)
  Sender: FDA-Public Use
  Company Number: PHEH2007US03187

PATIENT
  Sex: Female

DRUGS (6)
  1. ESTRADERM [Suspect]
     Indication: HORMONE REPLACEMENT THERAPY
     Dosage: 0.5 MG, UNK
     Route: 062
     Dates: start: 19940401, end: 19970601
  2. VIVELLE [Suspect]
     Indication: HORMONE REPLACEMENT THERAPY
     Dosage: 0.1 MG, UNK
     Route: 062
     Dates: start: 19971001, end: 19971201
  3. PREMARIN [Suspect]
     Indication: HORMONE REPLACEMENT THERAPY
  4. PROVERA [Suspect]
     Indication: HORMONE REPLACEMENT THERAPY
     Dosage: 2.5 MG, UNK
     Route: 048
     Dates: start: 19940301, end: 19940801
  5. ESTRADERM [Suspect]
     Dosage: 0.1 MG, UNK
     Route: 062
     Dates: start: 19970801, end: 20000201
  6. MEDROXYPROGESTERONE ACETATE [Suspect]
     Indication: HORMONE REPLACEMENT THERAPY
     Dosage: 2.5 MG, UNK
     Route: 048
     Dates: start: 19940901, end: 20000216

REACTIONS (48)
  - FIBROMYALGIA [None]
  - PAIN IN EXTREMITY [None]
  - HYPOGLYCAEMIA [None]
  - AMNESIA [None]
  - CEREBROVASCULAR DISORDER [None]
  - HYPOXIA [None]
  - IRRITABLE BOWEL SYNDROME [None]
  - LIPIDS INCREASED [None]
  - STAPHYLOCOCCAL INFECTION [None]
  - BREAST CANCER [None]
  - ADENOMYOSIS [None]
  - UTERINE LEIOMYOMA [None]
  - SLEEP APNOEA SYNDROME [None]
  - FIBROCYSTIC BREAST DISEASE [None]
  - ARTHRALGIA [None]
  - NEUROPATHY PERIPHERAL [None]
  - GASTRIC POLYPS [None]
  - BREAST MASS [None]
  - LYMPHOEDEMA [None]
  - DYSARTHRIA [None]
  - GAIT DISTURBANCE [None]
  - DEPRESSION [None]
  - TRANSIENT ISCHAEMIC ATTACK [None]
  - POSTMENOPAUSAL HAEMORRHAGE [None]
  - OBESITY [None]
  - MIGRAINE [None]
  - OSTEOARTHRITIS [None]
  - LYMPHADENOPATHY [None]
  - TYPE 2 DIABETES MELLITUS [None]
  - VIITH NERVE PARALYSIS [None]
  - PNEUMONIA [None]
  - HYPERTENSION [None]
  - HYPOAESTHESIA [None]
  - APHASIA [None]
  - PERIPHERAL SENSORY NEUROPATHY [None]
  - COGNITIVE DISORDER [None]
  - ASTHMA [None]
  - NON-HODGKIN'S LYMPHOMA [None]
  - THROMBOSIS [None]
  - ANXIETY [None]
  - NERVOUS SYSTEM DISORDER [None]
  - DIVERTICULUM INTESTINAL [None]
  - ABDOMINAL PAIN LOWER [None]
  - CEREBROVASCULAR ACCIDENT [None]
  - MOTOR DYSFUNCTION [None]
  - UTERINE HAEMORRHAGE [None]
  - DIABETIC NEUROPATHY [None]
  - DIARRHOEA [None]
